FAERS Safety Report 18933411 (Version 2)
Quarter: 2021Q1

REPORT INFORMATION
  Report Type: Spontaneous
  Country: FR (occurrence: FR)
  Receive Date: 20210224
  Receipt Date: 20210303
  Transmission Date: 20210420
  Serious: Yes (Hospitalization, Other)
  Sender: FDA-Public Use
  Company Number: NVSC2021FR021612

PATIENT
  Sex: Male
  Weight: 84 kg

DRUGS (4)
  1. CERTICAN [Suspect]
     Active Substance: EVEROLIMUS
     Indication: RENAL TRANSPLANT
     Dosage: 0.75 X 2 MG (WITH DOSE AT 4.63 MUGRAMS)
     Route: 048
     Dates: start: 20140201, end: 20140420
  2. ADVAGRAF [Concomitant]
     Active Substance: TACROLIMUS
     Indication: PRODUCT USED FOR UNKNOWN INDICATION
     Dosage: 1.5 MG, QD (WITH BLOOD LEVEL OF 5.6 MUG)
     Route: 048
  3. BISOCE [Concomitant]
     Active Substance: BISOPROLOL
     Indication: PRODUCT USED FOR UNKNOWN INDICATION
     Dosage: UNK
     Route: 065
  4. ATACAND [Concomitant]
     Active Substance: CANDESARTAN CILEXETIL
     Indication: PRODUCT USED FOR UNKNOWN INDICATION
     Dosage: UNK
     Route: 065

REACTIONS (15)
  - C-reactive protein increased [Unknown]
  - Lymphopenia [Unknown]
  - Interstitial lung disease [Unknown]
  - Leukopenia [Unknown]
  - Asthenia [Unknown]
  - Hyperthermia [Recovered/Resolved with Sequelae]
  - Systemic inflammatory response syndrome [Unknown]
  - Pyrexia [Unknown]
  - Cough [Recovering/Resolving]
  - General physical health deterioration [Recovered/Resolved with Sequelae]
  - Lung opacity [Unknown]
  - Eosinophilia [Unknown]
  - Serum ferritin increased [Unknown]
  - Anaemia [Unknown]
  - Dyspnoea exertional [Recovered/Resolved with Sequelae]

NARRATIVE: CASE EVENT DATE: 20140308
